FAERS Safety Report 24977923 (Version 1)
Quarter: 2025Q1

REPORT INFORMATION
  Report Type: Report from Study
  Country: AR (occurrence: AR)
  Receive Date: 20250217
  Receipt Date: 20250217
  Transmission Date: 20250409
  Serious: Yes (Hospitalization, Other)
  Sender: ELI LILLY AND COMPANY
  Company Number: AR-Merck Healthcare KGaA-2025006408

PATIENT
  Age: 66 Year
  Sex: Female
  Weight: 43 kg

DRUGS (1)
  1. CETUXIMAB [Suspect]
     Active Substance: CETUXIMAB
     Indication: Colorectal cancer
     Route: 042
     Dates: start: 20241016

REACTIONS (11)
  - Anaemia [Recovering/Resolving]
  - Immunodeficiency [Recovering/Resolving]
  - Gastrointestinal infection [Recovering/Resolving]
  - Listless [Recovering/Resolving]
  - Decreased appetite [Recovering/Resolving]
  - Dehydration [Recovering/Resolving]
  - Hypomagnesaemia [Recovering/Resolving]
  - Diarrhoea [Recovering/Resolving]
  - Malaise [Recovering/Resolving]
  - Vomiting [Recovering/Resolving]
  - Off label use [Unknown]

NARRATIVE: CASE EVENT DATE: 20250101
